FAERS Safety Report 6835649-X (Version None)
Quarter: 2010Q2

REPORT INFORMATION
  Report Type: 
  Country: None (occurrence: None)
  Receive Date: 20100520
  Receipt Date: 20090528
  Transmission Date: 20101027
  Serious: Yes (Other)
  Sender: FDA-Public Use
  Company Number: 2009220958

PATIENT
  Age: 57 Year
  Sex: Female

DRUGS (4)
  1. PROVERA [Suspect]
     Indication: HORMONE REPLACEMENT THERAPY
     Dosage: 5 MG
     Dates: start: 19870101, end: 20030101
  2. PREMARIN [Suspect]
     Dosage: 2.5 MG ; 1.25 MG : 0.9 MG
     Dates: start: 19870101, end: 20010101
  3. PREMARIN [Suspect]
     Dosage: 2.5 MG ; 1.25 MG : 0.9 MG
     Dates: start: 20011101, end: 20021101
  4. PREMARIN [Suspect]
     Dosage: 2.5 MG ; 1.25 MG : 0.9 MG
     Dates: start: 20021101, end: 20030501

REACTIONS (1)
  - BREAST CANCER FEMALE [None]
